FAERS Safety Report 9316418 (Version 1)
Quarter: 2013Q2

REPORT INFORMATION
  Report Type: Spontaneous
  Country: GB (occurrence: GB)
  Receive Date: 20130530
  Receipt Date: 20130530
  Transmission Date: 20140414
  Serious: Yes (Life-Threatening)
  Sender: FDA-Public Use
  Company Number: GB-TEVA-407632ISR

PATIENT
  Age: 91 Year
  Sex: Female

DRUGS (6)
  1. CARBIDOPA AND LEVODOPA [Suspect]
     Indication: PARKINSONISM
     Dosage: 50 MILLIGRAM DAILY;
     Route: 048
     Dates: start: 2008
  2. LEVOTHYROXINE [Concomitant]
  3. ATENOLOL [Concomitant]
  4. PARACETAMOL [Concomitant]
  5. FUROSEMIDE [Concomitant]
  6. DIURETIC [Concomitant]

REACTIONS (5)
  - Pain [Not Recovered/Not Resolved]
  - Somnolence [Unknown]
  - Unresponsive to stimuli [Not Recovered/Not Resolved]
  - Speech disorder [Unknown]
  - Drug withdrawal syndrome [Unknown]
